FAERS Safety Report 22222795 (Version 1)
Quarter: 2023Q2

REPORT INFORMATION
  Report Type: Spontaneous
  Country: FR (occurrence: FR)
  Receive Date: 20230418
  Receipt Date: 20230418
  Transmission Date: 20230722
  Serious: Yes (Other)
  Sender: FDA-Public Use
  Company Number: None

PATIENT
  Age: 65 Year
  Sex: Female

DRUGS (6)
  1. CISATRACURIUM BESYLATE [Suspect]
     Active Substance: CISATRACURIUM BESYLATE
     Indication: Anaesthesia
     Dosage: DOSAGE NOT SPECIFIED
     Dates: start: 20201217, end: 20201217
  2. CEFAZOLIN [Suspect]
     Active Substance: CEFAZOLIN
     Indication: Antibiotic prophylaxis
     Dosage: DOSAGE NOT SPECIFIED
     Dates: start: 20201217, end: 20201217
  3. SUFENTANIL [Suspect]
     Active Substance: SUFENTANIL
     Indication: Anaesthesia
     Dosage: DOSAGE NOT SPECIFIED
     Dates: start: 20201217, end: 20201217
  4. PROPOFOL [Suspect]
     Active Substance: PROPOFOL
     Indication: Anaesthesia
     Dosage: DOSAGE NOT SPECIFIED
     Dates: start: 20201217, end: 20201217
  5. KETAMINE [Suspect]
     Active Substance: KETAMINE
     Indication: Anaesthesia
     Dosage: DOSAGE NOT SPECIFIED
     Dates: start: 20201217, end: 20201217
  6. SOTALOL [Concomitant]
     Active Substance: SOTALOL

REACTIONS (2)
  - Hypotension [Recovered/Resolved]
  - Urticaria [Recovered/Resolved]

NARRATIVE: CASE EVENT DATE: 20201217
